FAERS Safety Report 25261380 (Version 2)
Quarter: 2025Q2

REPORT INFORMATION
  Report Type: Spontaneous
  Country: US (occurrence: US)
  Receive Date: 20250501
  Receipt Date: 20250524
  Transmission Date: 20250716
  Serious: Yes (Hospitalization)
  Sender: BRISTOL-MYERS SQUIBB COMPANY
  Company Number: US-BRISTOL-MYERS SQUIBB COMPANY-2025-060036

PATIENT
  Age: 66 Year
  Sex: Female

DRUGS (1)
  1. POMALYST [Suspect]
     Active Substance: POMALIDOMIDE
     Indication: Plasma cell myeloma
     Dosage: TAKE 1 CAPSULE BY MOUTH EVERY DAY FOR 21 DAYS WITH A 7 DAY REST PERIOD EVERY 28 DAYS
     Route: 048

REACTIONS (4)
  - Respiration abnormal [Recovering/Resolving]
  - Full blood count decreased [Recovering/Resolving]
  - Illness [Recovering/Resolving]
  - Product dose omission issue [Unknown]
